FAERS Safety Report 8032601-6 (Version None)
Quarter: 2011Q4

REPORT INFORMATION
  Report Type: 
  Country: None (occurrence: None)
  Receive Date: 20111202
  Receipt Date: 20101207
  Transmission Date: 20120403
  Serious: Yes (Other)
  Sender: FDA-Public Use
  Company Number: WAES 1012USA01439

PATIENT
  Age: 76 Year
  Sex: Female

DRUGS (3)
  1. FOSAMAX [Suspect]
     Indication: OSTEOPOROSIS
     Dosage: 70 MG/WKY/PO
     Route: 048
     Dates: start: 20050101, end: 20100823
  2. CALCIUM [Concomitant]
  3. VITAMIN TAB [Concomitant]

REACTIONS (4)
  - EXOSTOSIS [None]
  - OSTEOARTHRITIS [None]
  - FEMUR FRACTURE [None]
  - BONE SCAN ABNORMAL [None]
